FAERS Safety Report 10155747 (Version 1)
Quarter: 2014Q2

REPORT INFORMATION
  Report Type: Report from Study
  Country: US (occurrence: US)
  Receive Date: 20140506
  Receipt Date: 20140506
  Transmission Date: 20141212
  Serious: Yes (Hospitalization)
  Sender: FDA-Public Use
  Company Number: US-GLAXOSMITHKLINE-A1072120A

PATIENT
  Age: 71 Year
  Sex: Female
  Weight: 66 kg

DRUGS (9)
  1. OFATUMUMAB [Suspect]
     Indication: CHRONIC LYMPHOCYTIC LEUKAEMIA
     Dosage: 2000MG CYCLIC
     Dates: start: 20140114
  2. REVLIMID [Suspect]
     Indication: CHRONIC LYMPHOCYTIC LEUKAEMIA
     Dosage: 10MG PER DAY
     Dates: start: 20140411
  3. CELEXA [Concomitant]
     Dosage: 20MG PER DAY
     Route: 048
  4. METAMUCIL [Concomitant]
     Dosage: 2TABS PER DAY
     Route: 048
  5. PROBIOTIC [Concomitant]
     Dosage: 2TABS PER DAY
     Route: 048
  6. VALIUM [Concomitant]
     Dosage: 5MG AS REQUIRED
     Route: 048
  7. ASPIRIN [Concomitant]
     Dosage: 81MG PER DAY
     Route: 048
  8. CALCIUM CARBONATE [Concomitant]
     Dosage: 1200MG TWICE PER DAY
     Route: 048
  9. MULTIVITAMIN [Concomitant]
     Dosage: 1TAB PER DAY
     Route: 048

REACTIONS (1)
  - Febrile neutropenia [Unknown]
